FAERS Safety Report 25652868 (Version 3)
Quarter: 2025Q3

REPORT INFORMATION
  Report Type: Report from Study
  Country: US (occurrence: US)
  Receive Date: 20250807
  Receipt Date: 20250909
  Transmission Date: 20251021
  Serious: No
  Sender: BIOVITRUM
  Company Number: US-BIOVITRUM-2025-US-009495

PATIENT
  Age: 70 Year
  Sex: Male

DRUGS (1)
  1. DOPTELET [Suspect]
     Active Substance: AVATROMBOPAG MALEATE
     Indication: Immune thrombocytopenia
     Route: 048
     Dates: start: 20250625

REACTIONS (5)
  - Fatigue [Unknown]
  - Platelet count decreased [Recovered/Resolved]
  - Product packaging difficult to open [Unknown]
  - Platelet count increased [Unknown]
  - Hypotension [Not Recovered/Not Resolved]
